FAERS Safety Report 20723877 (Version 1)
Quarter: 2022Q2

REPORT INFORMATION
  Report Type: Spontaneous
  Country: US (occurrence: None)
  Receive Date: 20220418
  Receipt Date: 20220418
  Transmission Date: 20220720
  Serious: No
  Sender: FDA-Public Use
  Company Number: None

PATIENT
  Age: 76 Year
  Sex: Female

DRUGS (1)
  1. STELARA [Suspect]
     Active Substance: USTEKINUMAB
     Indication: Crohn^s disease
     Dosage: OTHER FREQUENCY : EVER 8 WEEKS;?
     Route: 058
     Dates: start: 20210916

REACTIONS (5)
  - Drug ineffective [None]
  - Crohn^s disease [None]
  - Abdominal symptom [None]
  - Gastrointestinal disorder [None]
  - Condition aggravated [None]

NARRATIVE: CASE EVENT DATE: 20220301
